FAERS Safety Report 20479730 (Version 1)
Quarter: 2022Q1

REPORT INFORMATION
  Report Type: Spontaneous
  Country: GB (occurrence: GB)
  Receive Date: 20220216
  Receipt Date: 20220216
  Transmission Date: 20220423
  Serious: Yes (Hospitalization)
  Sender: FDA-Public Use
  Company Number: None

PATIENT
  Age: 81 Year
  Sex: Female

DRUGS (4)
  1. RITUXIMAB [Suspect]
     Active Substance: RITUXIMAB
     Indication: Ill-defined disorder
     Dosage: UNK
     Route: 042
     Dates: start: 20220125, end: 20220125
  2. VINCRISTINE SULFATE [Suspect]
     Active Substance: VINCRISTINE SULFATE
     Indication: Ill-defined disorder
     Route: 042
     Dates: start: 20220125, end: 20220125
  3. CYCLOPHOSPHAMIDE [Suspect]
     Active Substance: CYCLOPHOSPHAMIDE
     Indication: Ill-defined disorder
     Dosage: UNK
     Route: 042
     Dates: start: 20220125, end: 20220125
  4. PREDNISOLONE [Suspect]
     Active Substance: PREDNISOLONE
     Indication: Ill-defined disorder
     Route: 048
     Dates: start: 20220125, end: 20220129

REACTIONS (1)
  - Atrial flutter [Recovering/Resolving]

NARRATIVE: CASE EVENT DATE: 20220203
